FAERS Safety Report 12751255 (Version 1)
Quarter: 2016Q3

REPORT INFORMATION
  Report Type: Spontaneous
  Country: CA (occurrence: CA)
  Receive Date: 20160915
  Receipt Date: 20160915
  Transmission Date: 20161109
  Serious: No
  Sender: FDA-Public Use
  Company Number: CA-JAZZ-2016-CA-005627

PATIENT
  Age: 6 Year
  Sex: Male

DRUGS (4)
  1. DIPHENHYDRAMINE. [Concomitant]
     Active Substance: DIPHENHYDRAMINE
     Indication: PREMEDICATION
     Dosage: 1 MG/KG, UNK
     Route: 042
  2. ERWINASE [Suspect]
     Active Substance: ASPARAGINASE ERWINIA CHRYSANTHEMI
     Indication: ACUTE LYMPHOCYTIC LEUKAEMIA RECURRENT
     Dosage: 25000 IU/M2, 2 DOSES
     Route: 042
  3. ONDANSETRON [Concomitant]
     Active Substance: ONDANSETRON
     Indication: PRODUCT USED FOR UNKNOWN INDICATION
     Dosage: 5 MG/M2, UNK
     Route: 042
  4. ERWINASE [Suspect]
     Active Substance: ASPARAGINASE ERWINIA CHRYSANTHEMI
     Dosage: 250000 IU/M2, 38 DOSES
     Route: 030

REACTIONS (3)
  - Nausea [Not Recovered/Not Resolved]
  - Transaminases increased [Unknown]
  - Vomiting [Not Recovered/Not Resolved]
